FAERS Safety Report 6288572-6 (Version None)
Quarter: 2009Q3

REPORT INFORMATION
  Report Type: 
  Country: None (occurrence: None)
  Receive Date: 20090729
  Receipt Date: 20090713
  Transmission Date: 20100115
  Serious: Yes (Other)
  Sender: FDA-Public Use
  Company Number: US-JNJFOC-20090502551

PATIENT
  Sex: Female
  Weight: 68.04 kg

DRUGS (17)
  1. FENTANYL TRANSDERMAL SYSTEM [Suspect]
     Route: 062
  2. FENTANYL TRANSDERMAL SYSTEM [Suspect]
     Indication: ARTHRALGIA
     Route: 062
  3. DURAGESIC-100 [Suspect]
     Route: 062
  4. DURAGESIC-100 [Suspect]
     Route: 062
  5. DURAGESIC-100 [Suspect]
     Indication: ARTHRALGIA
     Route: 062
  6. TYLOX [Suspect]
     Indication: PAIN
     Dosage: 5/500 MG AS NECESSARY
     Route: 048
  7. OXYCONTIN [Suspect]
     Indication: BREAKTHROUGH PAIN
     Dosage: AS NEEDED
     Route: 048
  8. LIDODERM [Suspect]
     Indication: PAIN
     Route: 065
  9. HYDROCHLOROTHIAZIDE [Concomitant]
     Indication: HYPERTENSION
     Route: 048
  10. FUROSEMIDE [Concomitant]
     Indication: OEDEMA
     Route: 048
  11. ATENOLOL [Concomitant]
     Indication: BLOOD PRESSURE
     Route: 048
  12. OMEPRAZOLE [Concomitant]
     Indication: GASTROOESOPHAGEAL REFLUX DISEASE
     Route: 048
  13. PREVACID [Concomitant]
     Indication: CHEST PAIN
     Route: 048
  14. ANACIN [Concomitant]
     Indication: BACK PAIN
  15. ACIPHEX [Concomitant]
  16. HYDRODIURIL [Concomitant]
  17. UNKNOWN MEDICATION [Concomitant]

REACTIONS (21)
  - ANAEMIA [None]
  - ARTHRALGIA [None]
  - BALANCE DISORDER [None]
  - BURSITIS [None]
  - DERMATITIS CONTACT [None]
  - DIZZINESS [None]
  - DRUG PRESCRIBING ERROR [None]
  - DYSPNOEA [None]
  - FALL [None]
  - GASTROENTERITIS VIRAL [None]
  - HYPERLIPIDAEMIA [None]
  - HYPERSOMNIA [None]
  - HYPERTENSION [None]
  - INSOMNIA [None]
  - MYOCLONUS [None]
  - PRURITUS [None]
  - RASH [None]
  - URINARY TRACT INFECTION [None]
  - VISION BLURRED [None]
  - WEIGHT DECREASED [None]
  - WITHDRAWAL SYNDROME [None]
